FAERS Safety Report 8169005-1 (Version None)
Quarter: 2012Q1

REPORT INFORMATION
  Report Type: 
  Country: None (occurrence: None)
  Receive Date: 20120227
  Receipt Date: 20120217
  Transmission Date: 20120608
  Serious: Yes (Other)
  Sender: FDA-Public Use
  Company Number: PHHY2012GB013657

PATIENT
  Age: 59 Year
  Sex: Female

DRUGS (2)
  1. ATENOLOL [Suspect]
  2. CLOPIDOGREL [Interacting]

REACTIONS (5)
  - HAEMORRHAGE [None]
  - SWELLING FACE [None]
  - DRUG INTERACTION [None]
  - RASH [None]
  - EYE SWELLING [None]
